FAERS Safety Report 9129813 (Version 4)
Quarter: 2013Q4

REPORT INFORMATION
  Report Type: Spontaneous
  Country: FR (occurrence: FR)
  Receive Date: 20130228
  Receipt Date: 20131206
  Transmission Date: 20140711
  Serious: Yes (Other)
  Sender: FDA-Public Use
  Company Number: FR-ROCHE-1195292

PATIENT
  Age: 40 Year
  Sex: Female

DRUGS (5)
  1. XOLAIR [Suspect]
     Indication: ASTHMA
     Route: 058
     Dates: start: 20110104, end: 20121127
  2. LEVOTHYROX [Concomitant]
     Route: 065
     Dates: start: 2006
  3. CORTANCYL [Concomitant]
     Route: 065
     Dates: start: 2006
  4. MIFLONIL [Concomitant]
     Route: 065
     Dates: start: 2006
  5. FORADIL [Concomitant]
     Route: 065
     Dates: start: 2006

REACTIONS (3)
  - Systemic lupus erythematosus [Unknown]
  - DNA antibody positive [Recovering/Resolving]
  - Arthralgia [Recovering/Resolving]
